FAERS Safety Report 17039644 (Version 2)
Quarter: 2020Q1

REPORT INFORMATION
  Report Type: Spontaneous
  Country: JP (occurrence: JP)
  Receive Date: 20191116
  Receipt Date: 20200124
  Transmission Date: 20200409
  Serious: Yes (Other)
  Sender: FDA-Public Use
  Company Number: JP-ABBVIE-19P-087-2996025-00

PATIENT
  Age: 70 Year
  Sex: Male
  Weight: 64 kg

DRUGS (2)
  1. CASODEX [Concomitant]
     Active Substance: BICALUTAMIDE
     Indication: PROSTATE CANCER RECURRENT
     Dosage: 80 MILLIGRAM, QD
     Route: 048
     Dates: start: 20180501
  2. LEUPLIN SR [Suspect]
     Active Substance: LEUPROLIDE ACETATE
     Indication: PROSTATE CANCER
     Route: 058
     Dates: start: 20190501, end: 20190514

REACTIONS (3)
  - Skin ulcer [Recovered/Resolved]
  - Swelling [Unknown]
  - Induration [Unknown]

NARRATIVE: CASE EVENT DATE: 2019
